FAERS Safety Report 8556137-9 (Version None)
Quarter: 2012Q3

REPORT INFORMATION
  Report Type: 
  Country: None (occurrence: None)
  Receive Date: 20120801
  Receipt Date: 20101020
  Transmission Date: 20120928
  Serious: Yes (Hospitalization, Other)
  Sender: FDA-Public Use
  Company Number: US-BAYER-200928784NA

PATIENT
  Age: 19 Year
  Sex: Female
  Weight: 79.091 kg

DRUGS (17)
  1. BACTROBAN [Concomitant]
     Dates: start: 20080201
  2. YAZ [Suspect]
     Indication: CONTRACEPTION
     Route: 048
     Dates: start: 20080401, end: 20090401
  3. IBUPROFEN [Concomitant]
     Dates: start: 20090201
  4. YASMIN [Suspect]
     Indication: CONTRACEPTION
     Route: 048
     Dates: start: 20060401, end: 20080301
  5. YAZ [Suspect]
     Indication: PREMENSTRUAL SYNDROME
  6. AMOXICILLIN AND CLAVULANATE POTASSIUM [Concomitant]
  7. MOTRIN [Concomitant]
  8. EFFEXOR [Concomitant]
     Indication: DEPRESSION
     Dates: start: 20040101
  9. VIRAL VACCINES [Concomitant]
     Dates: start: 20070706, end: 20070706
  10. OXYCODONE HCL [Concomitant]
     Dates: start: 20090101
  11. NAPROXEN [Concomitant]
     Dates: start: 20090201
  12. CEPHALEXIN [Concomitant]
     Dates: start: 20080201
  13. AMOXICILLIN [Concomitant]
     Dates: start: 20080901
  14. CIPROFLAXACIN [Concomitant]
     Dates: start: 20081201
  15. LEVAQUIN [Concomitant]
     Dates: start: 20081001
  16. YASMIN [Suspect]
     Indication: PREMENSTRUAL SYNDROME
  17. PROMETHAZINE W/ CODEINE [Concomitant]
     Dates: start: 20081201

REACTIONS (6)
  - GALLBLADDER PAIN [None]
  - OVARIAN CYST [None]
  - ABDOMINAL PAIN UPPER [None]
  - CHOLELITHIASIS [None]
  - CHOLECYSTITIS CHRONIC [None]
  - GALLBLADDER DISORDER [None]
